FAERS Safety Report 6876649-3 (Version None)
Quarter: 2010Q3

REPORT INFORMATION
  Report Type: 
  Country: None (occurrence: None)
  Receive Date: 20100727
  Receipt Date: 20100716
  Transmission Date: 20110219
  Serious: Yes (Hospitalization, Other)
  Sender: FDA-Public Use
  Company Number: JP-ROCHE-692145

PATIENT
  Sex: Male

DRUGS (2)
  1. ACTEMRA [Suspect]
     Indication: RHEUMATOID ARTHRITIS
     Route: 041
     Dates: start: 20100219, end: 20100219
  2. ACTEMRA [Suspect]
     Route: 041
     Dates: start: 20100705

REACTIONS (2)
  - HAEMATURIA [None]
  - OEDEMA [None]
